FAERS Safety Report 12737305 (Version 2)
Quarter: 2016Q4

REPORT INFORMATION
  Report Type: Report from Study
  Country: JP (occurrence: JP)
  Receive Date: 20160913
  Receipt Date: 20161010
  Transmission Date: 20170207
  Serious: Yes (Hospitalization)
  Sender: FDA-Public Use
  Company Number: JP-ACTELION-A-CH2016-142025

PATIENT
  Age: 80 Year
  Sex: Female

DRUGS (17)
  1. BEZAFIBRATE [Concomitant]
     Active Substance: BEZAFIBRATE
  2. OXYGEN. [Concomitant]
     Active Substance: OXYGEN
  3. LANSOPRAZOLE. [Concomitant]
     Active Substance: LANSOPRAZOLE
  4. FUROSEMIDE. [Concomitant]
     Active Substance: FUROSEMIDE
  5. AMLODIPINE [Concomitant]
     Active Substance: AMLODIPINE BESYLATE
  6. BROTIZOLAM [Concomitant]
     Active Substance: BROTIZOLAM
  7. SPIRONOLACTON [Concomitant]
     Active Substance: SPIRONOLACTONE
  8. CANDESARTAN [Concomitant]
     Active Substance: CANDESARTAN
  9. RIOCIGUAT [Concomitant]
     Active Substance: RIOCIGUAT
  10. FERROUS SODIUM CITRATE [Concomitant]
     Active Substance: SODIUM FERROUS CITRATE
  11. BERAPROST SODIUM [Concomitant]
     Active Substance: BERAPROST SODIUM
  12. OPSUMIT [Suspect]
     Active Substance: MACITENTAN
     Indication: PULMONARY HYPERTENSION
     Dosage: 10 MG, QD
     Route: 048
     Dates: start: 20160614, end: 20160724
  13. WARFARIN [Suspect]
     Active Substance: WARFARIN
     Indication: PULMONARY HYPERTENSION
     Dosage: 1.75 MG, UNK
     Route: 048
     Dates: start: 20160611, end: 20160715
  14. AZOSEMIDE [Concomitant]
     Active Substance: AZOSEMIDE
  15. POLAPREZINC [Concomitant]
     Active Substance: POLAPREZINC
  16. FEBUXOSTAT. [Concomitant]
     Active Substance: FEBUXOSTAT
  17. ALENDRONATE [Concomitant]
     Active Substance: ALENDRONATE SODIUM

REACTIONS (12)
  - Anaemia [Recovering/Resolving]
  - Transfusion [Unknown]
  - Pulmonary alveolar haemorrhage [Recovered/Resolved]
  - Haemoptysis [Recovered/Resolved]
  - International normalised ratio increased [Recovered/Resolved]
  - Cough [Recovered/Resolved]
  - Dyspnoea [Recovered/Resolved]
  - Malaise [Recovering/Resolving]
  - Haemoglobin decreased [Recovering/Resolving]
  - Right ventricular failure [Recovering/Resolving]
  - Concomitant disease aggravated [Recovering/Resolving]
  - Prothrombin time prolonged [Recovered/Resolved]

NARRATIVE: CASE EVENT DATE: 20160705
